FAERS Safety Report 18059328 (Version 1)
Quarter: 2020Q3

REPORT INFORMATION
  Report Type: Spontaneous
  Country: CN (occurrence: CN)
  Receive Date: 20200723
  Receipt Date: 20200723
  Transmission Date: 20201103
  Serious: Yes (Other)
  Sender: FDA-Public Use
  Company Number: CN-ROCHE-2646075

PATIENT
  Age: 56 Year
  Sex: Male

DRUGS (25)
  1. CYCLOPHOSPHAMIDE. [Concomitant]
     Active Substance: CYCLOPHOSPHAMIDE
     Dates: start: 20170808
  2. CYCLOPHOSPHAMIDE. [Concomitant]
     Active Substance: CYCLOPHOSPHAMIDE
     Dates: start: 20200313
  3. VINCRISTINE [Concomitant]
     Active Substance: VINCRISTINE
     Dates: start: 20170414
  4. VINCRISTINE [Concomitant]
     Active Substance: VINCRISTINE
     Dates: start: 20171108
  5. PIRARUBICIN [Concomitant]
     Active Substance: PIRARUBICIN
     Dates: start: 20170414
  6. PIRARUBICIN [Concomitant]
     Active Substance: PIRARUBICIN
     Dates: start: 20170808
  7. VINCRISTINE [Concomitant]
     Active Substance: VINCRISTINE
     Indication: NON-HODGKIN^S LYMPHOMA
     Dates: start: 20170317
  8. PREDNISONE. [Concomitant]
     Active Substance: PREDNISONE
     Dates: start: 20171108
  9. DEXAMETHASONE. [Concomitant]
     Active Substance: DEXAMETHASONE
     Indication: NON-HODGKIN^S LYMPHOMA
     Dates: start: 20180108
  10. PREDNISONE. [Concomitant]
     Active Substance: PREDNISONE
     Indication: NON-HODGKIN^S LYMPHOMA
     Dates: start: 20170317
  11. ETOPOSIDE. [Concomitant]
     Active Substance: ETOPOSIDE
     Dates: start: 20200313
  12. CISPLATIN. [Concomitant]
     Active Substance: CISPLATIN
     Indication: NON-HODGKIN^S LYMPHOMA
     Dates: start: 20180108
  13. CYCLOPHOSPHAMIDE. [Concomitant]
     Active Substance: CYCLOPHOSPHAMIDE
     Dates: start: 20171108
  14. VINCRISTINE [Concomitant]
     Active Substance: VINCRISTINE
     Dates: start: 20170808
  15. PIRARUBICIN [Concomitant]
     Active Substance: PIRARUBICIN
     Dates: start: 20171108
  16. ETOPOSIDE. [Concomitant]
     Active Substance: ETOPOSIDE
     Indication: NON-HODGKIN^S LYMPHOMA
     Dates: start: 20170808
  17. DOXORUBICIN [Concomitant]
     Active Substance: DOXORUBICIN
     Indication: NON-HODGKIN^S LYMPHOMA
     Dates: start: 20200313
  18. CYCLOPHOSPHAMIDE. [Concomitant]
     Active Substance: CYCLOPHOSPHAMIDE
     Indication: NON-HODGKIN^S LYMPHOMA
     Dates: start: 20170317
  19. PREDNISONE. [Concomitant]
     Active Substance: PREDNISONE
     Dates: start: 20170414
  20. PREDNISONE. [Concomitant]
     Active Substance: PREDNISONE
     Dates: start: 20170808
  21. CYCLOPHOSPHAMIDE. [Concomitant]
     Active Substance: CYCLOPHOSPHAMIDE
     Dates: start: 20170414
  22. PIRARUBICIN [Concomitant]
     Active Substance: PIRARUBICIN
     Indication: NON-HODGKIN^S LYMPHOMA
     Dates: start: 20170317
  23. DEXAMETHASONE. [Concomitant]
     Active Substance: DEXAMETHASONE
     Dates: start: 20200313
  24. MABTHERA [Suspect]
     Active Substance: RITUXIMAB
     Indication: NON-HODGKIN^S LYMPHOMA
     Dosage: NEXT DOSE ON 08/NOV/2017, 08/JAN/2020 AND 13/MAR/2020
     Route: 065
     Dates: start: 20170317
  25. CYTARABINE. [Concomitant]
     Active Substance: CYTARABINE
     Indication: NON-HODGKIN^S LYMPHOMA
     Dates: start: 20180108

REACTIONS (5)
  - Weight decreased [Unknown]
  - Ureteric dilatation [Unknown]
  - Renal failure [Unknown]
  - Renal hydrocele [Unknown]
  - Transaminases increased [Unknown]
